FAERS Safety Report 4648734-8 (Version None)
Quarter: 2005Q2

REPORT INFORMATION
  Report Type: 
  Country: None (occurrence: None)
  Receive Date: 20050427
  Receipt Date: 20050411
  Transmission Date: 20051028
  Serious: Yes (Other)
  Sender: FDA-Public Use
  Company Number: DSA_26266_2005

PATIENT
  Sex: Male

DRUGS (1)
  1. ATIVAN [Suspect]
     Dosage: DF

REACTIONS (3)
  - CONFUSIONAL STATE [None]
  - DEPENDENCE [None]
  - MENTAL DISORDER [None]
